FAERS Safety Report 23029782 (Version 2)
Quarter: 2023Q4

REPORT INFORMATION
  Report Type: Spontaneous
  Country: JP (occurrence: JP)
  Receive Date: 20231004
  Receipt Date: 20231004
  Transmission Date: 20240110
  Serious: Yes (Other)
  Sender: FDA-Public Use
  Company Number: JP-SA-2023SA298528

PATIENT
  Age: 40 Year
  Sex: Female

DRUGS (1)
  1. DUPIXENT [Suspect]
     Active Substance: DUPILUMAB
     Indication: Dermatitis atopic
     Route: 058

REACTIONS (7)
  - Corneal disorder [Unknown]
  - Corneal opacity [Unknown]
  - Visual acuity reduced [Recovering/Resolving]
  - Conjunctivalisation [Not Recovered/Not Resolved]
  - Conjunctival disorder [Not Recovered/Not Resolved]
  - Conjunctivitis [Recovering/Resolving]
  - Conjunctival hyperaemia [Recovering/Resolving]
